FAERS Safety Report 22020254 (Version 1)
Quarter: 2023Q1

REPORT INFORMATION
  Report Type: Spontaneous
  Country: US (occurrence: None)
  Receive Date: 20230217
  Receipt Date: 20230217
  Transmission Date: 20230417
  Serious: No
  Sender: FDA-Public Use
  Company Number: None

PATIENT
  Age: 26 Year
  Sex: Female
  Weight: 81 kg

DRUGS (2)
  1. ZAFEMY [Suspect]
     Active Substance: ETHINYL ESTRADIOL\NORELGESTROMIN
     Indication: Contraception
     Dosage: OTHER QUANTITY : 3 PATCH(ES);?OTHER FREQUENCY : ONCE A WEEK;?
     Route: 062
     Dates: start: 20221104, end: 20230217
  2. Rae pre/probiotic [Concomitant]

REACTIONS (9)
  - Product substitution issue [None]
  - Haemorrhage [None]
  - Muscle spasms [None]
  - Libido decreased [None]
  - Product adhesion issue [None]
  - Headache [None]
  - Weight increased [None]
  - Product quality issue [None]
  - High risk pregnancy [None]

NARRATIVE: CASE EVENT DATE: 20221104
